FAERS Safety Report 7270355-1 (Version None)
Quarter: 2011Q1

REPORT INFORMATION
  Report Type: 
  Country: None (occurrence: None)
  Receive Date: 20110202
  Receipt Date: 20110128
  Transmission Date: 20110831
  Serious: Yes (Life-Threatening, Hospitalization, Other)
  Sender: FDA-Public Use
  Company Number: GB-US-EMD SERONO, INC.-7038748

PATIENT
  Age: 24 Year
  Sex: Female

DRUGS (3)
  1. REBIF [Suspect]
     Indication: MULTIPLE SCLEROSIS
     Route: 048
     Dates: start: 20080101, end: 20100729
  2. PROZAC [Concomitant]
     Indication: DEPRESSION
     Route: 048
     Dates: end: 20100729
  3. VALPROATE SODIUM [Concomitant]
     Route: 048
     Dates: start: 20100601, end: 20100714

REACTIONS (5)
  - CONVULSION [None]
  - DEEP VEIN THROMBOSIS [None]
  - HAEMOLYTIC URAEMIC SYNDROME [None]
  - THROMBOTIC THROMBOCYTOPENIC PURPURA [None]
  - ARRHYTHMIA [None]
